FAERS Safety Report 7171206-6 (Version None)
Quarter: 2010Q4

REPORT INFORMATION
  Report Type: 
  Country: None (occurrence: None)
  Receive Date: 20101217
  Receipt Date: 20101213
  Transmission Date: 20110411
  Serious: Yes (Death, Other)
  Sender: FDA-Public Use
  Company Number: US-AMGEN-USASP2010009517

PATIENT

DRUGS (3)
  1. NPLATE [Suspect]
     Indication: PRODUCT USED FOR UNKNOWN INDICATION
  2. CORTICOSTEROIDS [Concomitant]
  3. IMMUNOGLOBULINS [Concomitant]

REACTIONS (2)
  - DEATH [None]
  - METASTASES TO CENTRAL NERVOUS SYSTEM [None]
